FAERS Safety Report 7456154-6 (Version None)
Quarter: 2011Q2

REPORT INFORMATION
  Report Type: 
  Country: None (occurrence: None)
  Receive Date: 20110503
  Receipt Date: 20091120
  Transmission Date: 20111010
  Serious: Yes (Death, Hospitalization, Other)
  Sender: FDA-Public Use
  Company Number: US-BAYER-200941011NA

PATIENT
  Age: 79 Year
  Sex: Male
  Weight: 91.9 kg

DRUGS (17)
  1. ASPIRIN [Concomitant]
     Indication: PRODUCT USED FOR UNKNOWN INDICATION
     Route: 048
  2. DIOVAN [Concomitant]
     Indication: PRODUCT USED FOR UNKNOWN INDICATION
     Dosage: 160/12.5MG
     Route: 048
  3. IMDUR [Concomitant]
     Indication: PRODUCT USED FOR UNKNOWN INDICATION
     Dosage: 30 MG, UNK
     Route: 048
  4. LOPRESSOR [Concomitant]
     Indication: PRODUCT USED FOR UNKNOWN INDICATION
     Dosage: 12.5 MG, UNK
     Route: 048
  5. PLASMA [Concomitant]
     Dosage: 2 UNITS
     Dates: start: 20070209
  6. DOPAMINE HCL [Concomitant]
     Dosage: UNK
     Dates: start: 20070209
  7. HYDROCHLOROTHIAZIDE [Concomitant]
     Indication: PRODUCT USED FOR UNKNOWN INDICATION
     Route: 048
  8. RED BLOOD CELLS [Concomitant]
     Dosage: 3 UNITS
     Dates: start: 20070209
  9. LEVOPHED [Concomitant]
     Dosage: UNK
     Dates: start: 20070209
  10. PLAVIX [Concomitant]
     Indication: PRODUCT USED FOR UNKNOWN INDICATION
     Dosage: 75 MG, UNK
     Route: 048
  11. ZOCOR [Concomitant]
     Indication: PRODUCT USED FOR UNKNOWN INDICATION
     Dosage: 20 MG, UNK
     Route: 048
  12. RED BLOOD CELLS [Concomitant]
     Dosage: 4 UNITS
     Dates: start: 20070209
  13. TRASYLOL [Suspect]
     Indication: CARDIAC OPERATION
     Route: 042
     Dates: start: 20070125
  14. GLUCOVANCE [Concomitant]
     Indication: PRODUCT USED FOR UNKNOWN INDICATION
     Dosage: 2.5/500MG
     Route: 048
  15. NITROGLYCERIN [Concomitant]
     Indication: PRODUCT USED FOR UNKNOWN INDICATION
     Route: 048
  16. TRASYLOL [Suspect]
     Indication: CORONARY ARTERY BYPASS
  17. ADALAT CC [Concomitant]
     Indication: PRODUCT USED FOR UNKNOWN INDICATION
     Dosage: 60 MG, UNK
     Route: 048

REACTIONS (10)
  - UNEVALUABLE EVENT [None]
  - ANHEDONIA [None]
  - ANXIETY [None]
  - PAIN [None]
  - DEATH [None]
  - CARDIAC FAILURE CONGESTIVE [None]
  - INJURY [None]
  - RENAL FAILURE [None]
  - FEAR [None]
  - DEPRESSION [None]
